FAERS Safety Report 12439093 (Version 1)
Quarter: 2016Q2

REPORT INFORMATION
  Report Type: Spontaneous
  Country: US (occurrence: US)
  Receive Date: 20160606
  Receipt Date: 20160606
  Transmission Date: 20160815
  Serious: No
  Sender: FDA-Public Use
  Company Number: US-PFIZER INC-2016224092

PATIENT
  Age: 68 Year
  Sex: Female

DRUGS (19)
  1. BUTIBEL [Suspect]
     Active Substance: ATROPA BELLADONNA\BUTABARBITAL SODIUM
     Dosage: UNK
  2. PROPULSID [Suspect]
     Active Substance: CISAPRIDE
     Dosage: UNK
  3. DORYX [Suspect]
     Active Substance: DOXYCYCLINE HYCLATE
     Dosage: UNK
  4. SULFUR. [Suspect]
     Active Substance: SULFUR
     Dosage: UNK
  5. ERYTHROMYCIN. [Suspect]
     Active Substance: ERYTHROMYCIN
     Dosage: UNK
  6. ZEPHIRAN [Suspect]
     Active Substance: BENZALKONIUM CHLORIDE
     Dosage: UNK
  7. CODEINE [Suspect]
     Active Substance: CODEINE
     Dosage: UNK
  8. MANDELAMINE [Suspect]
     Active Substance: METHENAMINE MANDELATE
     Dosage: UNK
  9. PREVACID [Suspect]
     Active Substance: LANSOPRAZOLE
     Dosage: UNK
  10. PRILOSEC [Suspect]
     Active Substance: OMEPRAZOLE MAGNESIUM
     Dosage: UNK
  11. MEPERIDINE [Suspect]
     Active Substance: MEPERIDINE
     Dosage: UNK
  12. BALSAM OF PERU [Suspect]
     Active Substance: BALSAM PERU
  13. CARAFATE [Suspect]
     Active Substance: SUCRALFATE
     Dosage: UNK
  14. LEVAQUIN [Suspect]
     Active Substance: LEVOFLOXACIN
     Dosage: UNK
  15. CLINDAMYCIN HCL [Suspect]
     Active Substance: CLINDAMYCIN HYDROCHLORIDE
     Dosage: UNK
  16. MORPHINE SULFATE. [Suspect]
     Active Substance: MORPHINE SULFATE
     Dosage: UNK
  17. FURACIN [Suspect]
     Active Substance: NITROFURAZONE
     Dosage: UNK
  18. MACRODANTIN [Suspect]
     Active Substance: NITROFURANTOIN
     Dosage: UNK
  19. PHENAZOPYRIDINE. [Suspect]
     Active Substance: PHENAZOPYRIDINE
     Dosage: UNK

REACTIONS (1)
  - Drug hypersensitivity [Unknown]
